FAERS Safety Report 21708706 (Version 2)
Quarter: 2025Q3

REPORT INFORMATION
  Report Type: Spontaneous
  Country: EU (occurrence: EU)
  Receive Date: 20221210
  Receipt Date: 20250805
  Transmission Date: 20251021
  Serious: Yes (Life-Threatening, Hospitalization)
  Sender: AUROBINDO
  Company Number: EU-BBM-PT-BBM-202209002

PATIENT
  Age: 91 Year
  Sex: Female

DRUGS (8)
  1. LIDOCAINE [Suspect]
     Active Substance: LIDOCAINE
     Indication: Anaesthesia eye
     Route: 065
  2. ROPIVACAINE [Suspect]
     Active Substance: ROPIVACAINE
     Indication: Anaesthesia eye
     Route: 065
  3. DROPERIDOL [Concomitant]
     Active Substance: DROPERIDOL
     Indication: Analgesic therapy
     Route: 065
  4. DROPERIDOL [Concomitant]
     Active Substance: DROPERIDOL
     Indication: Sedative therapy
  5. FENTANYL [Concomitant]
     Active Substance: FENTANYL
     Indication: Analgesic therapy
     Route: 065
  6. FENTANYL [Concomitant]
     Active Substance: FENTANYL
     Indication: Sedative therapy
  7. FUROSEMIDE [Concomitant]
     Active Substance: FUROSEMIDE
     Indication: Product used for unknown indication
     Dosage: 20 MILLIGRAM, ONCE A DAY
     Route: 065
  8. ACETAMINOPHEN [Concomitant]
     Active Substance: ACETAMINOPHEN
     Indication: Product used for unknown indication
     Route: 065

REACTIONS (1)
  - Anaesthetic complication [Recovered/Resolved]
